FAERS Safety Report 17414850 (Version 4)
Quarter: 2020Q3

REPORT INFORMATION
  Report Type: Spontaneous
  Country: US (occurrence: US)
  Receive Date: 20200213
  Receipt Date: 20200826
  Transmission Date: 20201102
  Serious: Yes (Other)
  Sender: FDA-Public Use
  Company Number: US-PFIZER INC-2020060625

PATIENT
  Age: 60 Year
  Sex: Female

DRUGS (1)
  1. XELJANZ XR [Suspect]
     Active Substance: TOFACITINIB CITRATE
     Indication: RHEUMATOID ARTHRITIS
     Dosage: 11 MG, DAILY
     Route: 048
     Dates: start: 201907, end: 2020

REACTIONS (8)
  - Urinary tract infection [Unknown]
  - Joint injury [Recovered/Resolved]
  - Illness [Recovered/Resolved]
  - Sinusitis [Unknown]
  - Herpes zoster [Unknown]
  - Fall [Unknown]
  - Musculoskeletal stiffness [Unknown]
  - Condition aggravated [Unknown]

NARRATIVE: CASE EVENT DATE: 201911
